FAERS Safety Report 6392282-4 (Version None)
Quarter: 2009Q4

REPORT INFORMATION
  Report Type: 
  Country: None (occurrence: None)
  Receive Date: 20091007
  Receipt Date: 20090924
  Transmission Date: 20100525
  Serious: Yes (Other)
  Sender: FDA-Public Use
  Company Number: HR-PFIZER INC-2009273336

PATIENT
  Age: 51 Year

DRUGS (2)
  1. SUTENT [Suspect]
     Indication: METASTATIC RENAL CELL CARCINOMA
     Dosage: 37.5 MG, 1X/DAY
     Route: 048
     Dates: start: 20090501
  2. MEGOSTAT [Concomitant]
     Dosage: UNK
     Route: 048

REACTIONS (3)
  - HAEMATOMA [None]
  - PAIN IN EXTREMITY [None]
  - WOUND [None]
